FAERS Safety Report 4343698-9 (Version None)
Quarter: 2004Q2

REPORT INFORMATION
  Report Type: 
  Country: None (occurrence: None)
  Receive Date: 20040419
  Receipt Date: 20040406
  Transmission Date: 20050107
  Serious: Yes (Other)
  Sender: FDA-Public Use
  Company Number: US-JNJFOC-20040301669

PATIENT
  Age: 50 Year
  Sex: Male
  Weight: 89.8122 kg

DRUGS (7)
  1. REMICADE [Suspect]
     Indication: RHEUMATOID ARTHRITIS
     Dosage: INTRAVENOUS
     Route: 042
     Dates: start: 20020101
  2. REMICADE [Suspect]
     Indication: RHEUMATOID ARTHRITIS
     Dosage: INTRAVENOUS
     Route: 042
     Dates: start: 20040201
  3. PROCARDIA [Concomitant]
  4. PREDNISONE [Concomitant]
  5. SULINDAC [Concomitant]
  6. VICODIN [Concomitant]
  7. PRILOSEC [Concomitant]

REACTIONS (3)
  - FEELING ABNORMAL [None]
  - FLUSHING [None]
  - PAIN [None]
